FAERS Safety Report 4269913-8 (Version None)
Quarter: 2004Q1

REPORT INFORMATION
  Report Type: 
  Country: None (occurrence: None)
  Receive Date: 20040112
  Receipt Date: 20040112
  Transmission Date: 20041129
  Serious: Yes (Hospitalization)
  Sender: FDA-Public Use
  Company Number: None

PATIENT
  Age: 77 Year
  Sex: Male

DRUGS (12)
  1. TERAZOSIN HCL [Suspect]
     Indication: HYPERTENSION
     Dosage: 10 MG QHS
     Dates: start: 20031118
  2. SPIRONOLACTONE [Suspect]
     Indication: HYPERTENSION
     Dosage: 50 MG BID
     Dates: start: 20031110
  3. BUSPIRONE HCL [Concomitant]
  4. ALLOPURINOL [Concomitant]
  5. HYDROCHLOROTHIAZIDE [Concomitant]
  6. LISINOPRIL [Concomitant]
  7. PAROXETINE [Concomitant]
  8. ZOCOR [Concomitant]
  9. METOPR [Concomitant]
  10. KCL TAB [Concomitant]
  11. RANITIDINE [Concomitant]
  12. OSS [Concomitant]

REACTIONS (2)
  - HYPERKALAEMIA [None]
  - ORTHOSTATIC HYPOTENSION [None]
